FAERS Safety Report 20700528 (Version 2)
Quarter: 2022Q2

REPORT INFORMATION
  Report Type: Report from Study
  Country: AU (occurrence: None)
  Receive Date: 20220412
  Receipt Date: 20220422
  Transmission Date: 20220721
  Serious: Yes (Hospitalization)
  Sender: FDA-Public Use
  Company Number: AU-ROCHE-3021571

PATIENT
  Age: 65 Year
  Sex: Male

DRUGS (21)
  1. FARICIMAB [Suspect]
     Active Substance: FARICIMAB
     Indication: Diabetic retinal oedema
     Dosage: ON 13/JAN/2022, LAST STUDY DRUG WAS ADMINISTERED PRIOR TO AE AND SAE WAS 6 MG
     Route: 050
     Dates: start: 20210114
  2. AFLIBERCEPT [Suspect]
     Active Substance: AFLIBERCEPT
     Indication: Diabetic retinal oedema
     Dosage: ON 13/JAN/2022, MOST RECENT DOSE OF STUDY DRUG ADMINISTERED PRIOR TO AE AND SAE WAS 2 MG
     Route: 050
     Dates: start: 20210114
  3. PRAZOSIN HYDROCHLORIDE [Concomitant]
     Active Substance: PRAZOSIN HYDROCHLORIDE
     Indication: Hypertension
     Dosage: YES
     Route: 048
     Dates: start: 2017
  4. SIMVASTATIN [Concomitant]
     Active Substance: SIMVASTATIN
     Indication: Blood cholesterol increased
     Dosage: YES
     Route: 048
     Dates: start: 2017
  5. RYZODEG 70/30 [Concomitant]
     Active Substance: INSULIN ASPART\INSULIN DEGLUDEC
     Indication: Diabetes mellitus
     Dosage: YES
     Route: 058
     Dates: start: 20191125
  6. CHLORAMPHENICOL [Concomitant]
     Active Substance: CHLORAMPHENICOL
     Dosage: GIVEN FOR PROPHYLAXIS: YES, MEDICATION ONGOING: YES
     Route: 047
     Dates: start: 20220122
  7. CHLORAMPHENICOL [Concomitant]
     Active Substance: CHLORAMPHENICOL
     Dosage: GIVEN FOR PROPHYLAXIS: YES, MEDICATION ONGOING: YES
     Route: 047
     Dates: start: 20220122
  8. ABISART [Concomitant]
     Indication: Hypertension
     Dosage: YES
     Route: 048
     Dates: start: 2009
  9. METFORMIN [Concomitant]
     Active Substance: METFORMIN HYDROCHLORIDE
     Indication: Diabetes mellitus
     Dosage: YES
     Dates: start: 2003
  10. RYZODEG 70/30 [Concomitant]
     Active Substance: INSULIN ASPART\INSULIN DEGLUDEC
     Indication: Diabetes mellitus
     Dosage: YES
     Route: 058
     Dates: start: 20191125
  11. JARDIANCE [Concomitant]
     Active Substance: EMPAGLIFLOZIN
     Indication: Diabetes mellitus
     Dosage: YES
     Route: 048
     Dates: start: 20200430
  12. NEBIVOLOL [Concomitant]
     Active Substance: NEBIVOLOL
     Indication: Hypertension
     Dosage: YES
     Route: 048
     Dates: start: 20210831
  13. CEPHALEXIN [Concomitant]
     Active Substance: CEPHALEXIN
     Dosage: GIVEN FOR PROPHYLAXIS: YES, MEDICATION ONGOING: NO
     Route: 047
     Dates: start: 20220121, end: 20220121
  14. MAXIDEX [Concomitant]
     Active Substance: DEXAMETHASONE
     Dosage: GIVEN FOR PROPHYLAXIS: YES, MEDICATION ONGOING: YES
     Route: 047
     Dates: start: 20220122
  15. PANADOL [Concomitant]
     Active Substance: ACETAMINOPHEN
     Dosage: GIVEN FOR PROPHYLAXIS: YES, MEDICATION ONGOING: NO
     Route: 048
     Dates: start: 20220122, end: 20220122
  16. ENOXAPARIN SODIUM [Concomitant]
     Active Substance: ENOXAPARIN SODIUM
     Indication: Anticoagulant therapy
     Route: 058
     Dates: start: 20220207, end: 20220216
  17. IRBESARTAN [Concomitant]
     Active Substance: IRBESARTAN
     Indication: Hypertension
     Route: 048
     Dates: start: 20220207, end: 20220214
  18. NITROGLYCERIN [Concomitant]
     Active Substance: NITROGLYCERIN
     Indication: Product used for unknown indication
     Route: 062
     Dates: start: 20220216, end: 20220216
  19. ASPIRIN [Concomitant]
     Active Substance: ASPIRIN
     Indication: Product used for unknown indication
     Route: 048
     Dates: start: 20220218
  20. DENSIRON XTRA [Concomitant]
     Indication: Product used for unknown indication
     Route: 050
     Dates: start: 20220121, end: 20220121
  21. TOMENTIN [Concomitant]
     Indication: Product used for unknown indication
     Route: 042
     Dates: start: 20220207, end: 20220207

REACTIONS (1)
  - Peripheral vascular disorder [Recovered/Resolved]

NARRATIVE: CASE EVENT DATE: 20220208
